FAERS Safety Report 5202912-8 (Version None)
Quarter: 2006Q4

REPORT INFORMATION
  Report Type: 
  Country: None (occurrence: None)
  Receive Date: 20061016
  Receipt Date: 20060405
  Transmission Date: 20070319
  Serious: Yes (Other)
  Sender: FDA-Public Use
  Company Number: 2006031837

PATIENT
  Age: 58 Year
  Sex: Female

DRUGS (15)
  1. NEURONTIN [Suspect]
     Indication: ILL-DEFINED DISORDER
     Dosage: 900 MG (300 MG, 3 IN 1 D)
  2. LEXAPRO [Concomitant]
  3. PROTONIX [Concomitant]
  4. TRAZODONE HCL [Concomitant]
  5. PARECOXIB (PARECOXIB) [Concomitant]
  6. RHINOCORT [Concomitant]
  7. ESTRATEST [Concomitant]
  8. HYDROCODONE BITARTRATE [Concomitant]
  9. MONTELUKAST (MONTELUKAST) [Concomitant]
  10. ESTRADIOL [Concomitant]
  11. BACLOFEN [Concomitant]
  12. TYLENOL W/ CODEINE NO. 3 [Concomitant]
  13. DARVOCET [Concomitant]
  14. LEVODOPA-CARBIDOPA (CARBIDOPA, LEVODOPA) [Concomitant]
  15. ALL  OTHER THERAPEUTIC PRODUCTS (ALL  OTHER THERAPEUTIC PRODUCTS) [Concomitant]

REACTIONS (1)
  - SUICIDAL IDEATION [None]
